FAERS Safety Report 10382186 (Version 3)
Quarter: 2015Q2

REPORT INFORMATION
  Report Type: Spontaneous
  Country: US (occurrence: US)
  Receive Date: 20140813
  Receipt Date: 20150625
  Transmission Date: 20150821
  Serious: Yes (Other)
  Sender: FDA-Public Use
  Company Number: US-ACORDA-ACO_105404_2014

PATIENT
  Age: 51 Year
  Sex: Female

DRUGS (2)
  1. AMPYRA [Suspect]
     Active Substance: DALFAMPRIDINE
     Dosage: 10 MG, QD
     Route: 048
  2. AMPYRA [Suspect]
     Active Substance: DALFAMPRIDINE
     Indication: MULTIPLE SCLEROSIS
     Dosage: 10 MG, BID
     Route: 048
     Dates: start: 20130703

REACTIONS (4)
  - Fall [Recovered/Resolved]
  - Incorrect dose administered [Not Recovered/Not Resolved]
  - Seizure [Recovered/Resolved]
  - Contraindicated drug administered [Not Recovered/Not Resolved]

NARRATIVE: CASE EVENT DATE: 20140722
